FAERS Safety Report 6645683-0 (Version None)
Quarter: 2010Q1

REPORT INFORMATION
  Report Type: 
  Country: None (occurrence: None)
  Receive Date: 20100319
  Receipt Date: 20100319
  Transmission Date: 20100710
  Serious: Yes (Life-Threatening, Hospitalization)
  Sender: FDA-Public Use
  Company Number: None

PATIENT
  Age: 51 Year
  Sex: Male
  Weight: 116 kg

DRUGS (1)
  1. LEVOFLOXACIN [Suspect]
     Indication: SURGERY
     Dosage: 500 MG EVERY DAY PO
     Route: 048
     Dates: start: 20091223, end: 20091224

REACTIONS (1)
  - TUBULOINTERSTITIAL NEPHRITIS [None]
